FAERS Safety Report 20082875 (Version 2)
Quarter: 2021Q4

REPORT INFORMATION
  Report Type: Spontaneous
  Country: PL (occurrence: PL)
  Receive Date: 20211117
  Receipt Date: 20211207
  Transmission Date: 20220303
  Serious: Yes (Hospitalization, Other)
  Sender: FDA-Public Use
  Company Number: PL-002147023-NVSC2021PL246598

PATIENT
  Age: 61 Year
  Sex: Male
  Weight: 100 kg

DRUGS (25)
  1. APIXABAN [Suspect]
     Active Substance: APIXABAN
     Indication: Cerebrovascular accident prophylaxis
     Dosage: 5 MILLIGRAM, BID
     Route: 065
     Dates: start: 201809
  2. EPLERENONE [Suspect]
     Active Substance: EPLERENONE
     Dosage: 50 MILLIGRAM
     Route: 065
     Dates: start: 201707, end: 201808
  3. EPLERENONE [Suspect]
     Active Substance: EPLERENONE
     Dosage: 50 MILLIGRAM
     Route: 065
     Dates: start: 201808
  4. EPLERENONE [Suspect]
     Active Substance: EPLERENONE
     Dosage: 50 MILLIGRAM
     Route: 065
     Dates: start: 201809
  5. ATORVASTATIN CALCIUM [Suspect]
     Active Substance: ATORVASTATIN CALCIUM
     Dosage: 20 MILLIGRAM, QD
     Route: 065
     Dates: start: 201707, end: 201910
  6. ATORVASTATIN CALCIUM [Suspect]
     Active Substance: ATORVASTATIN CALCIUM
     Dosage: 20 MILLIGRAM, QD
     Route: 065
     Dates: start: 201808
  7. ATORVASTATIN CALCIUM [Suspect]
     Active Substance: ATORVASTATIN CALCIUM
     Dosage: 20 MILLIGRAM, QD
     Route: 065
     Dates: start: 201809
  8. ROSUVASTATIN [Suspect]
     Active Substance: ROSUVASTATIN
     Dosage: 30 MILLIGRAM, QD
     Route: 065
     Dates: start: 201910
  9. RIVAROXABAN [Suspect]
     Active Substance: RIVAROXABAN
     Dosage: 20 MILLIGRAM, QD
     Route: 065
     Dates: start: 201707, end: 201808
  10. METOPROLOL [Suspect]
     Active Substance: METOPROLOL
     Dosage: 50 MILLIGRAM, QD
     Route: 065
     Dates: start: 201707
  11. METOPROLOL [Suspect]
     Active Substance: METOPROLOL
     Dosage: 47.5 MILLIGRAM, QD
     Route: 065
     Dates: start: 201808
  12. METOPROLOL [Suspect]
     Active Substance: METOPROLOL
     Dosage: 47.5 MILLIGRAM, QD
     Route: 065
     Dates: start: 201809
  13. PANTOPRAZOLE SODIUM [Suspect]
     Active Substance: PANTOPRAZOLE SODIUM
     Dosage: 20 MILLIGRAM, QD
     Route: 065
     Dates: start: 201707
  14. PANTOPRAZOLE SODIUM [Suspect]
     Active Substance: PANTOPRAZOLE SODIUM
     Dosage: 20 MILLIGRAM, QD
     Route: 065
     Dates: start: 201809
  15. VALSARTAN [Suspect]
     Active Substance: VALSARTAN
     Dosage: 60 MILLIGRAM
     Route: 065
     Dates: start: 201707
  16. WARFARIN [Suspect]
     Active Substance: WARFARIN
     Dosage: ACCORDING TO INR
     Route: 065
     Dates: start: 201808
  17. TORSEMIDE [Suspect]
     Active Substance: TORSEMIDE
     Dosage: 10 MILLIGRAM, BID
     Route: 065
     Dates: start: 201707
  18. TORSEMIDE [Suspect]
     Active Substance: TORSEMIDE
     Dosage: 20-10-0 MG, (DOSE WAS GENTLY INCREASED
     Route: 065
     Dates: start: 201808
  19. TORSEMIDE [Suspect]
     Active Substance: TORSEMIDE
     Dosage: 10 MILLIGRAM, BID
     Route: 065
     Dates: start: 201809
  20. SACUBITRIL\VALSARTAN [Suspect]
     Active Substance: SACUBITRIL\VALSARTAN
     Dosage: 100 MG, BID, (2 X 49/51 MG)
     Route: 065
     Dates: start: 201711, end: 201808
  21. SACUBITRIL\VALSARTAN [Suspect]
     Active Substance: SACUBITRIL\VALSARTAN
     Dosage: 200 MG, BID, (2 X 97/103 MG)
     Route: 065
     Dates: start: 201712
  22. SACUBITRIL\VALSARTAN [Suspect]
     Active Substance: SACUBITRIL\VALSARTAN
     Dosage: UNK
     Route: 065
     Dates: start: 201808
  23. SACUBITRIL\VALSARTAN [Suspect]
     Active Substance: SACUBITRIL\VALSARTAN
     Dosage: 100 MG, BID, (2 X 49/51 MG)
     Route: 065
     Dates: start: 201809
  24. SACUBITRIL\VALSARTAN [Suspect]
     Active Substance: SACUBITRIL\VALSARTAN
     Dosage: 200 MG, BID, (2 X 97/103 MG)
     Route: 065
     Dates: start: 201901
  25. POTASSIUM [Suspect]
     Active Substance: POTASSIUM
     Dosage: UNK
     Route: 065
     Dates: start: 201808

REACTIONS (19)
  - Atrial fibrillation [Unknown]
  - Cardiac failure congestive [Unknown]
  - Weight increased [Unknown]
  - Oedema peripheral [Unknown]
  - Glomerular filtration rate decreased [Unknown]
  - Left ventricular dysfunction [Unknown]
  - Aortic valve incompetence [Unknown]
  - Carotid arteriosclerosis [Unknown]
  - Heart rate increased [Unknown]
  - Diarrhoea [Unknown]
  - Product dose omission issue [Unknown]
  - Inappropriate schedule of product administration [Unknown]
  - Alanine aminotransferase increased [Unknown]
  - Aspartate aminotransferase increased [Unknown]
  - Blood cholesterol increased [Unknown]
  - Blood creatinine increased [Unknown]
  - Low density lipoprotein increased [Unknown]
  - N-terminal prohormone brain natriuretic peptide increased [Unknown]
  - Heart rate decreased [Unknown]

NARRATIVE: CASE EVENT DATE: 20170701
